FAERS Safety Report 5536100-2 (Version None)
Quarter: 2007Q4

REPORT INFORMATION
  Report Type: 
  Country: None (occurrence: None)
  Receive Date: 20071120
  Receipt Date: 20070802
  Transmission Date: 20080405
  Serious: No
  Sender: FDA-Public Use
  Company Number: WAES 0708USA00712

PATIENT
  Sex: Female

DRUGS (7)
  1. JANUVIA [Suspect]
     Indication: TYPE 2 DIABETES MELLITUS
     Dosage: 100 MG DAILY PO
     Route: 048
     Dates: start: 20070515, end: 20070625
  2. AVANDIA [Concomitant]
  3. DIOVAN [Concomitant]
  4. HYDRODIURIL [Concomitant]
  5. ZETIA [Concomitant]
  6. ESTROGENS (UNSPECIFIED) [Concomitant]
  7. GLIPIZIDE [Concomitant]

REACTIONS (2)
  - CHEST DISCOMFORT [None]
  - DYSPNOEA [None]
